FAERS Safety Report 9371750 (Version 1)
Quarter: 2013Q2

REPORT INFORMATION
  Report Type: Report from Study
  Country: US (occurrence: US)
  Receive Date: 20130627
  Receipt Date: 20130627
  Transmission Date: 20140414
  Serious: Yes (Hospitalization)
  Sender: FDA-Public Use
  Company Number: US-SANOFI-AVENTIS-2013SA054111

PATIENT
  Age: 61 Year
  Sex: Male
  Weight: 70.67 kg

DRUGS (11)
  1. JEVTANA [Suspect]
     Route: 042
     Dates: start: 20130502, end: 20130522
  2. MITOXANTRONE [Suspect]
     Route: 042
     Dates: start: 20130502, end: 20130522
  3. DENOSUMAB [Concomitant]
     Dosage: INJECT IN TO SKIN EVERY 30 DAYS
  4. HYDROCODONE W/ACETAMINOPHEN [Concomitant]
     Dosage: 10-325 MG-1 TAB, 6HRS
     Route: 048
  5. LUPRON [Concomitant]
     Dosage: INJECT IN TO MUSCLE Q3 MONTHS
  6. PREDNISONE [Concomitant]
     Route: 048
  7. VENLAFAXINE [Concomitant]
     Route: 048
  8. DULCOLAX [Concomitant]
     Route: 048
  9. SENNA [Concomitant]
     Route: 048
  10. CALCIUM W/VITAMIN D NOS [Concomitant]
     Dosage: 1000MG/2000 INT UNIT-1
     Route: 048
  11. MULTIVITAMINS [Concomitant]
     Route: 048

REACTIONS (4)
  - Urinary tract infection [Recovered/Resolved]
  - Sepsis [Recovered/Resolved]
  - Hypotension [Recovered/Resolved]
  - Blood creatinine increased [Recovered/Resolved]
